FAERS Safety Report 8524942-0 (Version None)
Quarter: 2012Q3

REPORT INFORMATION
  Report Type: 
  Country: None (occurrence: None)
  Receive Date: 20120710
  Receipt Date: 20120628
  Transmission Date: 20120928
  Serious: Yes (Other)
  Sender: FDA-Public Use
  Company Number: AUR-APL-2012-02850

PATIENT
  Age: 68 Year
  Sex: Female

DRUGS (3)
  1. OMEPRAZOLE [Suspect]
     Indication: GASTRIC DISORDER
     Dosage: 20 MG, ORAL
     Route: 048
     Dates: start: 20120315
  2. ACYCLOVIR [Suspect]
     Indication: ORAL HERPES
     Dosage: 400 MG, ORAL
     Route: 048
     Dates: start: 20120315, end: 20120322
  3. FLUCONAZOLE [Suspect]
     Indication: CANDIDIASIS
     Dosage: 50 MG, ORAL
     Route: 048
     Dates: start: 20120315, end: 20120322

REACTIONS (3)
  - ALANINE AMINOTRANSFERASE INCREASED [None]
  - BLOOD ALKALINE PHOSPHATASE INCREASED [None]
  - PROTEIN TOTAL INCREASED [None]
